FAERS Safety Report 7237240-2 (Version None)
Quarter: 2011Q1

REPORT INFORMATION
  Report Type: 
  Country: None (occurrence: None)
  Receive Date: 20110121
  Receipt Date: 20110113
  Transmission Date: 20110831
  Serious: Yes (Other)
  Sender: FDA-Public Use
  Company Number: FR-ASTELLAS-2011EU000206

PATIENT
  Sex: Female

DRUGS (4)
  1. IMUREL [Concomitant]
     Dosage: UNK
     Route: 065
  2. PROGRAF [Suspect]
     Indication: RENAL TRANSPLANT
     Dosage: UNK
     Route: 065
  3. SOLUPRED [Concomitant]
     Dosage: UNK
     Route: 065
  4. CELLCEPT [Concomitant]
     Dosage: UNK
     Route: 065

REACTIONS (6)
  - FATIGUE [None]
  - HAEMORRHAGE [None]
  - VARICOSE VEINS VAGINAL [None]
  - DRUG EXPOSURE DURING PREGNANCY [None]
  - ABORTION INDUCED [None]
  - PAPILLOMA VIRAL INFECTION [None]
